FAERS Safety Report 5308444-0 (Version None)
Quarter: 2007Q2

REPORT INFORMATION
  Report Type: 
  Country: None (occurrence: None)
  Receive Date: 20070426
  Receipt Date: 20070415
  Transmission Date: 20071010
  Serious: Yes (Hospitalization)
  Sender: FDA-Public Use
  Company Number: ES-ROCHE-417276

PATIENT
  Age: 65 Year
  Sex: Male

DRUGS (35)
  1. DACLIZUMAB [Suspect]
     Route: 042
     Dates: start: 20050704, end: 20050704
  2. DACLIZUMAB [Suspect]
     Route: 042
     Dates: start: 20050711, end: 20050711
  3. MYCOPHENOLATE MOFETIL [Suspect]
     Route: 042
     Dates: start: 20050704, end: 20050704
  4. MYCOPHENOLATE MOFETIL [Suspect]
     Route: 048
     Dates: end: 20050711
  5. MYCOPHENOLATE MOFETIL [Suspect]
     Dosage: REASON FOR CHANGE: DYSPEPSIA.
     Route: 048
     Dates: start: 20050712, end: 20051026
  6. MYCOPHENOLATE MOFETIL [Suspect]
     Route: 048
     Dates: start: 20051026, end: 20060214
  7. MYCOPHENOLATE MOFETIL [Suspect]
     Route: 048
     Dates: start: 20060215, end: 20060703
  8. TACROLIMUS [Suspect]
     Dosage: ADJUSTED TO REACH PREDEFINED TARGET LEVELS
     Route: 048
     Dates: start: 20050705, end: 20060703
  9. METHYLPREDNISOLONE 16MG TAB [Suspect]
     Dosage: TAPERED ACCORDING TO LOCAL PROTOCOL
     Route: 065
     Dates: start: 20050704, end: 20050712
  10. METHYLPREDNISOLONE 16MG TAB [Suspect]
     Dosage: TAPERED ACCORDING TO LOCAL PROTOCOL
     Route: 065
     Dates: start: 20060128, end: 20060703
  11. PREDNISONE TAB [Suspect]
     Route: 065
     Dates: start: 20050713, end: 20060127
  12. PANTOPRAZOL [Concomitant]
     Indication: PROPHYLAXIS AGAINST GASTROINTESTINAL ULCER
     Dates: start: 20050704
  13. INSULIN [Concomitant]
     Dates: start: 20050704, end: 20050730
  14. CIPROFLOXACIN HCL [Concomitant]
     Dates: start: 20050704, end: 20050806
  15. TEICOPLANIN [Concomitant]
     Dates: start: 20050704, end: 20050711
  16. SEPTRIN [Concomitant]
     Dates: start: 20050704, end: 20050908
  17. NISTATIN [Concomitant]
     Indication: ANTIFUNGAL PROPHYLAXIS
     Dates: start: 20050704, end: 20050708
  18. FENTANILO [Concomitant]
     Dates: start: 20050704, end: 20050707
  19. FUROSEMIDA [Concomitant]
     Dosage: STOPPED ON 5 JUL 2005 AND RESTARTED ON 7 JUL 05.
     Dates: start: 20050705, end: 20050718
  20. ITRACONAZOLE [Concomitant]
     Indication: ANTIFUNGAL PROPHYLAXIS
     Dates: start: 20050706, end: 20051016
  21. CALCIUM CHLORIDE [Concomitant]
     Dates: start: 20050707, end: 20050708
  22. DOLANTINA [Concomitant]
     Dates: start: 20050707, end: 20050719
  23. ORFIDAL [Concomitant]
     Indication: ANXIETY
     Dates: start: 20050707, end: 20051202
  24. LEXATIN [Concomitant]
     Indication: ANXIETY
     Dosage: STOPPED ON 9 JUL 05 AND RESTARTED ON 15 JUL 05
     Dates: start: 20050707, end: 20050731
  25. LARGACTIL [Concomitant]
     Dosage: INDICATION REPORTED AS HYPUS.
     Dates: start: 20050707, end: 20050708
  26. PRIMPERAN INJ [Concomitant]
     Indication: NAUSEA
     Dates: start: 20050708, end: 20050713
  27. DOPAMINE HCL [Concomitant]
     Indication: OLIGURIA
     Dates: start: 20050708, end: 20050709
  28. ASTUDAL [Concomitant]
     Indication: HYPERTENSION
     Dates: start: 20050708, end: 20050718
  29. BOI-K [Concomitant]
     Dates: start: 20050710, end: 20050712
  30. CLEXANE [Concomitant]
     Indication: ARTERIAL STENOSIS
     Dates: start: 20050715, end: 20051227
  31. ACYCLOVIR [Concomitant]
     Dates: start: 20050713, end: 20050720
  32. ACETAMINOPHEN [Concomitant]
     Dates: start: 20050714, end: 20050716
  33. VANCOMYCIN [Concomitant]
     Dates: start: 20050714, end: 20050729
  34. LIDOCAINE [Concomitant]
     Indication: ORAL HERPES
     Route: 061
     Dates: start: 20050714, end: 20050731
  35. CEFTRIAXONE [Concomitant]
     Dates: start: 20050720, end: 20050721

REACTIONS (3)
  - BILE DUCT NECROSIS [None]
  - BILIARY TRACT DISORDER [None]
  - POST PROCEDURAL INFECTION [None]
